FAERS Safety Report 5113395-0 (Version None)
Quarter: 2006Q3

REPORT INFORMATION
  Report Type: 
  Country: None (occurrence: None)
  Receive Date: 20060920
  Receipt Date: 20060904
  Transmission Date: 20061208
  Serious: Yes (Hospitalization)
  Sender: FDA-Public Use
  Company Number: 2006JP000613

PATIENT
  Age: 45 Year
  Sex: Male
  Weight: 51 kg

DRUGS (16)
  1. FUNGUARD [Suspect]
     Indication: BRONCHOPULMONARY ASPERGILLOSIS
     Dosage: SEE IMAGE
     Dates: start: 20051212, end: 20051225
  2. FUNGUARD [Suspect]
     Indication: BRONCHOPULMONARY ASPERGILLOSIS
     Dosage: SEE IMAGE
     Dates: start: 20060106, end: 20060109
  3. FUNGUARD [Suspect]
     Indication: BRONCHOPULMONARY ASPERGILLOSIS
     Dosage: SEE IMAGE
     Dates: start: 20060110, end: 20060112
  4. FUNGUARD [Suspect]
     Indication: BRONCHOPULMONARY ASPERGILLOSIS
     Dosage: SEE IMAGE
     Dates: start: 20060403, end: 20060416
  5. TIENAM (IMIPENEM, CILASTATIN SODIUM) INJECTION [Suspect]
     Indication: BRONCHITIS ACUTE
     Dosage: 0.5 G, BID, IV NOS
     Route: 042
     Dates: start: 20060112, end: 20060118
  6. UNIPHYL [Concomitant]
  7. MUCODYNE              (CARBOCISTEINE) [Concomitant]
  8. MUCOSOLVAN        (AMBROXOL HYDROCHLORIDE) [Concomitant]
  9. VITAMEDIN CAPSULE               (BENFOTIAMINE) [Concomitant]
  10. GASTER D [Concomitant]
  11. LEVOFLOXACIN [Concomitant]
  12. FOSMICIN S            (FOSFOMYCIN SODIUM) [Concomitant]
  13. PREDNISOLONE [Concomitant]
     Route: 048
  14. ITRACONAZOLE [Concomitant]
  15. RABEPRAZOLE SODIUM [Concomitant]
  16. TAMIFLU [Concomitant]

REACTIONS (10)
  - ARTHRALGIA [None]
  - BACK PAIN [None]
  - BRONCHIECTASIS [None]
  - BRONCHITIS ACUTE [None]
  - GASTRIC ULCER [None]
  - HAEMOPTYSIS [None]
  - HYPERTHERMIA [None]
  - PNEUMONIA [None]
  - PSEUDOMONAS INFECTION [None]
  - PULMONARY HAEMORRHAGE [None]
